FAERS Safety Report 5903167-9 (Version None)
Quarter: 2008Q3

REPORT INFORMATION
  Report Type: 
  Country: None (occurrence: None)
  Receive Date: 20080926
  Receipt Date: 20080919
  Transmission Date: 20090109
  Serious: Yes (Death, Life-Threatening, Hospitalization)
  Sender: FDA-Public Use
  Company Number: 97733

PATIENT
  Age: 48 Year
  Sex: Female

DRUGS (3)
  1. ACETAMINOPHEN [Suspect]
     Indication: INFLUENZA
     Dosage: UNK/UNK/ORAL
     Route: 048
  2. ACETAMINOPHEN W/ CODEINE [Suspect]
     Indication: INFLUENZA
     Dosage: UNK/UNK/ORAL
     Route: 048
  3. FLU REMEMDY (UNSPECIFIED) [Suspect]
     Indication: INFLUENZA

REACTIONS (21)
  - ABDOMINAL RIGIDITY [None]
  - ACTIVATED PARTIAL THROMBOPLASTIN TIME PROLONGED [None]
  - ACUTE HEPATIC FAILURE [None]
  - ASTHENIA [None]
  - BLOOD GLUCOSE DECREASED [None]
  - BLOOD POTASSIUM INCREASED [None]
  - BLOOD PRESSURE DECREASED [None]
  - BLOOD SODIUM DECREASED [None]
  - BODY TEMPERATURE DECREASED [None]
  - BRADYCARDIA [None]
  - DEHYDRATION [None]
  - DEPRESSED LEVEL OF CONSCIOUSNESS [None]
  - HEART RATE INCREASED [None]
  - HEPATORENAL FAILURE [None]
  - JAUNDICE [None]
  - MALAISE [None]
  - METABOLIC ACIDOSIS [None]
  - OVERDOSE [None]
  - PLATELET COUNT DECREASED [None]
  - PROTHROMBIN TIME PROLONGED [None]
  - SELF-MEDICATION [None]
